FAERS Safety Report 21165710 (Version 1)
Quarter: 2022Q3

REPORT INFORMATION
  Report Type: Spontaneous
  Country: VE (occurrence: VE)
  Receive Date: 20220803
  Receipt Date: 20220803
  Transmission Date: 20221027
  Serious: Yes (Death, Other)
  Sender: FDA-Public Use
  Company Number: VE-NOVARTISPH-NVSC2022VE174973

PATIENT
  Sex: Male

DRUGS (1)
  1. GLIVEC [Suspect]
     Active Substance: IMATINIB MESYLATE
     Indication: Acute lymphocytic leukaemia
     Dosage: 300 MG (3 X 100MG)
     Route: 065

REACTIONS (3)
  - Death [Fatal]
  - Hepatitis C [Unknown]
  - Gastritis [Unknown]
